FAERS Safety Report 8623132-0 (Version None)
Quarter: 2012Q3

REPORT INFORMATION
  Report Type: 
  Country: None (occurrence: None)
  Receive Date: 20120827
  Receipt Date: 20120813
  Transmission Date: 20120928
  Serious: Yes (Hospitalization)
  Sender: FDA-Public Use
  Company Number: ES-SANOFI-AVENTIS-2011SA071996

PATIENT
  Age: 70 Year
  Sex: Male
  Weight: 93.5 kg

DRUGS (29)
  1. DOCETAXEL [Suspect]
     Route: 042
     Dates: start: 20111005
  2. TIMOFTOL [Concomitant]
     Indication: OCULAR HYPERTENSION
  3. ATORVASTATIN [Concomitant]
     Dates: start: 20060101
  4. LYRICA [Concomitant]
     Indication: PAIN
     Dates: start: 20070101
  5. BISOPROLOL FUMARATE [Concomitant]
     Dates: start: 20060101
  6. HEPARIN [Concomitant]
     Indication: THROMBOSIS PROPHYLAXIS
     Dosage: DOSE:3500 UNIT(S)
  7. OMACOR [Concomitant]
     Dosage: DOSE:1 UNIT(S)
     Dates: start: 20060101
  8. ACETAMINOPHEN [Concomitant]
  9. ONDANSETRON [Concomitant]
     Dates: start: 20101005, end: 20111122
  10. FUROSEMIDE [Concomitant]
     Dosage: DOSE:1 UNIT(S)
  11. CALCIUM [Concomitant]
     Dates: start: 20111013, end: 20111014
  12. OXYCODONE HYDROCHLORIDE [Concomitant]
     Dosage: DOSE:1 UNIT(S)
     Dates: start: 20111101
  13. OMEPRAZOLE [Concomitant]
     Dates: start: 20070101
  14. CALCIUM CARBONATE [Concomitant]
     Dates: start: 20111009
  15. CALCIUM CARBONATE [Concomitant]
     Dates: start: 20111010
  16. NOLOTIL [Concomitant]
     Dosage: DOSE:1 UNIT(S)
  17. NITROGLYCERIN [Concomitant]
     Dates: start: 20060101
  18. CALCIUM [Concomitant]
     Dosage: 500 UNIT NOT REPORTED
     Dates: start: 20111014, end: 20111017
  19. DOCETAXEL [Suspect]
     Route: 042
     Dates: start: 20111024
  20. TORSEMIDE [Concomitant]
     Indication: HYPERTENSION
     Dates: start: 20060101, end: 20111022
  21. ACOVIL [Concomitant]
     Dates: start: 20060101
  22. CALCIUM [Concomitant]
     Dates: start: 20111014, end: 20111014
  23. ASPIRIN [Concomitant]
     Dates: start: 20060101
  24. LORMETAZEPAM [Concomitant]
     Indication: INSOMNIA
  25. BLINDED THERAPY [Suspect]
     Route: 048
     Dates: start: 20111006
  26. TRAMADOL HCL [Concomitant]
  27. FUROSEMIDE [Concomitant]
     Indication: HYPERTENSION
     Dosage: DOSE:1 UNIT(S)
  28. PRIMPERAN TAB [Concomitant]
     Indication: NAUSEA
     Dates: start: 20111006
  29. DEXAMETHASONE [Concomitant]
     Dates: start: 20111005, end: 20111122

REACTIONS (4)
  - NEUTROPENIA [None]
  - DIARRHOEA [None]
  - HYPOCALCAEMIA [None]
  - HYPOPHOSPHATAEMIA [None]
